FAERS Safety Report 20416874 (Version 2)
Quarter: 2022Q2

REPORT INFORMATION
  Report Type: Report from Study
  Country: BR (occurrence: BR)
  Receive Date: 20220202
  Receipt Date: 20220528
  Transmission Date: 20220721
  Serious: Yes (Other)
  Sender: FDA-Public Use
  Company Number: BR-NOVARTISPH-NVSC2021BR157788

PATIENT
  Age: 59 Year
  Sex: Female

DRUGS (10)
  1. COSENTYX [Suspect]
     Active Substance: SECUKINUMAB
     Indication: Ankylosing spondylitis
     Dosage: 150 MG
     Route: 065
     Dates: start: 202006
  2. COSENTYX [Suspect]
     Active Substance: SECUKINUMAB
     Dosage: 300 MG
     Route: 065
  3. COSENTYX [Suspect]
     Active Substance: SECUKINUMAB
     Dosage: UNK
     Route: 065
     Dates: start: 20210225
  4. COSENTYX [Suspect]
     Active Substance: SECUKINUMAB
     Dosage: UNK
     Route: 065
     Dates: start: 20210325
  5. COSENTYX [Suspect]
     Active Substance: SECUKINUMAB
     Dosage: UNK
     Route: 065
     Dates: start: 20210425
  6. COSENTYX [Suspect]
     Active Substance: SECUKINUMAB
     Dosage: UNK
     Route: 065
     Dates: start: 20210601
  7. COSENTYX [Suspect]
     Active Substance: SECUKINUMAB
     Dosage: UNK
     Route: 065
     Dates: start: 20210627
  8. COSENTYX [Suspect]
     Active Substance: SECUKINUMAB
     Dosage: UNK
     Route: 065
     Dates: start: 20211225
  9. ZOLPIDEM [Suspect]
     Active Substance: ZOLPIDEM TARTRATE
     Indication: Sleep disorder
     Dosage: UNK (MORE THAN 2 YEARS AGO)
     Route: 065
  10. ETORICOXIB [Concomitant]
     Active Substance: ETORICOXIB
     Indication: Antiinflammatory therapy
     Dosage: 90 MG
     Route: 065

REACTIONS (24)
  - Immunosuppression [Unknown]
  - Spondylitis [Unknown]
  - Pain [Recovered/Resolved]
  - Joint swelling [Unknown]
  - Psoriasis [Unknown]
  - Arthralgia [Unknown]
  - Fatigue [Unknown]
  - Pain in extremity [Unknown]
  - Decreased appetite [Recovered/Resolved]
  - Mass [Unknown]
  - Discomfort [Unknown]
  - Sensitisation [Unknown]
  - Erythema [Unknown]
  - Depressed mood [Unknown]
  - Intervertebral disc protrusion [Unknown]
  - Insomnia [Recovering/Resolving]
  - Headache [Unknown]
  - Hyperhidrosis [Unknown]
  - Gait disturbance [Unknown]
  - Weight decreased [Unknown]
  - Muscle spasms [Recovering/Resolving]
  - Inappropriate schedule of product administration [Recovered/Resolved]
  - Therapeutic product effect increased [Unknown]
  - Drug ineffective [Unknown]

NARRATIVE: CASE EVENT DATE: 20210302
